FAERS Safety Report 21900868 (Version 1)
Quarter: 2023Q1

REPORT INFORMATION
  Report Type: Report from Study
  Country: CO (occurrence: CO)
  Receive Date: 20230123
  Receipt Date: 20230123
  Transmission Date: 20230418
  Serious: Yes (Hospitalization)
  Sender: FDA-Public Use
  Company Number: CO-ALLERGAN-2301302US

PATIENT
  Sex: Female
  Weight: 77 kg

DRUGS (2)
  1. BOTULINUM TOXIN TYPE A [Suspect]
     Active Substance: BOTULINUM TOXIN TYPE A
     Indication: Migraine
     Dosage: 200 UNITS, SINGLE
     Route: 030
     Dates: start: 20190213, end: 20190213
  2. DIPYRONE [Suspect]
     Active Substance: DIPYRONE
     Indication: Migraine
     Dosage: UNK, SINGLE
     Dates: start: 2022, end: 2022

REACTIONS (11)
  - Trigeminal nerve disorder [Recovering/Resolving]
  - Migraine [Recovering/Resolving]
  - Ligament sprain [Recovering/Resolving]
  - Head discomfort [Recovering/Resolving]
  - Rash erythematous [Recovered/Resolved]
  - Gait disturbance [Recovering/Resolving]
  - Muscle discomfort [Recovering/Resolving]
  - Fall [Recovered/Resolved]
  - Crying [Recovering/Resolving]
  - Screaming [Recovering/Resolving]
  - Drug hypersensitivity [Recovered/Resolved]

NARRATIVE: CASE EVENT DATE: 20220101
